FAERS Safety Report 8588311-X (Version None)
Quarter: 2012Q3

REPORT INFORMATION
  Report Type: 
  Country: None (occurrence: None)
  Receive Date: 20120813
  Receipt Date: 20120801
  Transmission Date: 20120928
  Serious: Yes (Hospitalization, Other)
  Sender: FDA-Public Use
  Company Number: US-ELI_LILLY_AND_COMPANY-US200804001895

PATIENT
  Sex: Female

DRUGS (27)
  1. CYMBALTA [Suspect]
     Indication: MAJOR DEPRESSION
     Dosage: UNK UNK, UNKNOWN
     Route: 065
     Dates: start: 20070801
  2. METOPROLOL TARTRATE [Concomitant]
     Dosage: 25 MG, BID
  3. COLACE [Concomitant]
     Dosage: 100 MG, TID
  4. VENTOLIN HFA [Concomitant]
  5. NITROGLYCERIN [Concomitant]
     Indication: CHEST PAIN
  6. PLAVIX [Concomitant]
     Dosage: 75 MG, QD
  7. SIMVASTATIN [Concomitant]
  8. ZOCOR [Concomitant]
     Dosage: 80 MG, QD
  9. AMOXICILLIN [Concomitant]
  10. CYMBALTA [Suspect]
     Dosage: 60 MG, UNKNOWN
  11. CYMBALTA [Suspect]
     Dosage: 80 MG, QD
     Route: 048
  12. PROZAC [Suspect]
     Indication: DEPRESSION
     Dosage: UNK, UNKNOWN
     Route: 065
     Dates: start: 19970101
  13. FLUTICASONE PROPIONATE [Concomitant]
  14. CALCITRATE [Concomitant]
  15. ALBUTEROL [Concomitant]
  16. LOPRESSOR [Concomitant]
  17. GLYBURIDE [Concomitant]
     Dosage: UNK, UNKNOWN
     Route: 065
  18. METFORMIN HCL [Concomitant]
     Dosage: 500 MG, QD
  19. FORADIL [Concomitant]
  20. MULTI-VITAMIN [Concomitant]
  21. GLUCOSAMINE + CHONDROITIN WITH MSM /06119101/ [Concomitant]
  22. XANAX [Concomitant]
  23. ASPIRIN [Concomitant]
     Dosage: 81 MG, QD
  24. FISH OIL [Concomitant]
  25. CITALOPRAM HYDROBROMIDE [Concomitant]
  26. GLUCOSAMINE W/CHONDROITIN [Concomitant]
  27. ENTERIC ASPIRIN [Concomitant]

REACTIONS (17)
  - CARDIAC DISORDER [None]
  - INSOMNIA [None]
  - HYPOAESTHESIA [None]
  - DEPRESSION [None]
  - PAIN IN EXTREMITY [None]
  - HEADACHE [None]
  - DRUG INEFFECTIVE [None]
  - BLOOD GLUCOSE DECREASED [None]
  - FALL [None]
  - NEGATIVE THOUGHTS [None]
  - DRUG EFFECT DECREASED [None]
  - COLON CANCER [None]
  - CONTUSION [None]
  - LOSS OF CONSCIOUSNESS [None]
  - BACK PAIN [None]
  - ANXIETY [None]
  - BLOOD DISORDER [None]
